FAERS Safety Report 12232012 (Version 2)
Quarter: 2017Q1

REPORT INFORMATION
  Report Type: Spontaneous
  Country: US (occurrence: US)
  Receive Date: 20160401
  Receipt Date: 20170310
  Transmission Date: 20170428
  Serious: Yes (Other)
  Sender: FDA-Public Use
  Company Number: US-ELI_LILLY_AND_COMPANY-US201603011183

PATIENT
  Sex: Female

DRUGS (5)
  1. CYMBALTA [Suspect]
     Active Substance: DULOXETINE HYDROCHLORIDE
     Indication: PAIN
     Dosage: UNK, UNKNOWN
     Route: 065
  2. CYMBALTA [Suspect]
     Active Substance: DULOXETINE HYDROCHLORIDE
     Dosage: 30 MG, QOD
     Route: 065
  3. CYMBALTA [Suspect]
     Active Substance: DULOXETINE HYDROCHLORIDE
     Dosage: 30 MG, QOD
     Route: 065
  4. CYMBALTA [Suspect]
     Active Substance: DULOXETINE HYDROCHLORIDE
     Indication: DEPRESSION
     Dosage: 60 MG, QOD
     Route: 065
  5. CYMBALTA [Suspect]
     Active Substance: DULOXETINE HYDROCHLORIDE
     Dosage: 30 MG, QD
     Route: 065

REACTIONS (27)
  - Sleep disorder [Unknown]
  - Insomnia [Unknown]
  - Asthenia [Unknown]
  - Night sweats [Unknown]
  - Fatigue [Unknown]
  - Paraesthesia [Unknown]
  - Mood swings [Unknown]
  - Palpitations [Unknown]
  - Hyperhidrosis [Unknown]
  - Wrong technique in product usage process [Unknown]
  - Dysphoria [Unknown]
  - Affect lability [Unknown]
  - Crying [Unknown]
  - Nightmare [Unknown]
  - Nausea [Unknown]
  - Diarrhoea [Unknown]
  - Suicidal ideation [Unknown]
  - Irritability [Unknown]
  - Dizziness [Unknown]
  - Fall [Unknown]
  - Disturbance in attention [Unknown]
  - Withdrawal syndrome [Unknown]
  - Anxiety [Unknown]
  - Headache [Unknown]
  - Tinnitus [Unknown]
  - Serotonin syndrome [Unknown]
  - Vertigo [Unknown]
